FAERS Safety Report 4993316-1 (Version None)
Quarter: 2006Q2

REPORT INFORMATION
  Report Type: 
  Country: None (occurrence: None)
  Receive Date: 20060505
  Receipt Date: 20060209
  Transmission Date: 20061013
  Serious: Yes (Hospitalization, Other)
  Sender: FDA-Public Use
  Company Number: PHFR2006GB00821

PATIENT
  Age: 21 Year
  Sex: Female

DRUGS (2)
  1. CLOZARIL [Suspect]
     Indication: SCHIZOPHRENIA
     Dosage: 300 MG/DAY
     Route: 048
     Dates: start: 20050215
  2. CLOZARIL [Suspect]
     Dosage: 275 MG/DAY
     Route: 048

REACTIONS (7)
  - ANXIETY [None]
  - ECHOCARDIOGRAM ABNORMAL [None]
  - PERICARDIAL DISEASE [None]
  - SEDATION [None]
  - SINUS TACHYCARDIA [None]
  - SOCIAL AVOIDANT BEHAVIOUR [None]
  - SYNCOPE [None]
